FAERS Safety Report 6978728-9 (Version None)
Quarter: 2010Q3

REPORT INFORMATION
  Report Type: 
  Country: None (occurrence: None)
  Receive Date: 20100913
  Receipt Date: 20100907
  Transmission Date: 20110219
  Serious: Yes (Hospitalization)
  Sender: FDA-Public Use
  Company Number: B0674021A

PATIENT
  Sex: Female
  Weight: 56 kg

DRUGS (2)
  1. TYKERB [Suspect]
     Indication: BREAST CANCER
     Dosage: 1250MG PER DAY
     Route: 048
     Dates: start: 20091014, end: 20091202
  2. XELODA [Concomitant]
     Dosage: 1800MG PER DAY
     Route: 048
     Dates: start: 20091015, end: 20091202

REACTIONS (3)
  - CHOLANGITIS [None]
  - HEPATIC FUNCTION ABNORMAL [None]
  - PYREXIA [None]
